FAERS Safety Report 22335680 (Version 1)
Quarter: 2023Q2

REPORT INFORMATION
  Report Type: Spontaneous
  Country: ES (occurrence: ES)
  Receive Date: 20230518
  Receipt Date: 20230518
  Transmission Date: 20230722
  Serious: Yes (Hospitalization)
  Sender: FDA-Public Use
  Company Number: ES-NOVITIUMPHARMA-2023ESNVP00737

PATIENT
  Age: 77 Year
  Sex: Female

DRUGS (6)
  1. DIGOXIN [Suspect]
     Active Substance: DIGOXIN
     Indication: Atrial fibrillation
  2. DIGOXIN [Suspect]
     Active Substance: DIGOXIN
  3. DIGOXIN [Suspect]
     Active Substance: DIGOXIN
  4. DIGOXIN [Suspect]
     Active Substance: DIGOXIN
  5. OSIMERTINIB [Concomitant]
     Active Substance: OSIMERTINIB
     Indication: Non-small cell lung cancer stage II
     Dates: start: 202203
  6. OSIMERTINIB [Concomitant]
     Active Substance: OSIMERTINIB
     Dosage: HALF-DOSE

REACTIONS (3)
  - Drug interaction [Unknown]
  - Drug level increased [Unknown]
  - Hypomagnesaemia [Unknown]
